FAERS Safety Report 6157255-5 (Version None)
Quarter: 2009Q2

REPORT INFORMATION
  Report Type: 
  Country: None (occurrence: None)
  Receive Date: 20090416
  Receipt Date: 20090406
  Transmission Date: 20091009
  Serious: Yes (Other)
  Sender: FDA-Public Use
  Company Number: US-ABBOTT-09P-163-0566748-00

PATIENT
  Sex: Female
  Weight: 68.554 kg

DRUGS (2)
  1. HUMIRA [Suspect]
     Indication: PSORIASIS
     Route: 058
     Dates: start: 20090311
  2. SYNTHROID [Concomitant]
     Indication: DRUG USE FOR UNKNOWN INDICATION
     Dates: start: 20070101

REACTIONS (7)
  - ASTHENIA [None]
  - DYSPHAGIA [None]
  - DYSPHASIA [None]
  - FALL [None]
  - MOBILITY DECREASED [None]
  - SWOLLEN TONGUE [None]
  - THYROID NEOPLASM [None]
